FAERS Safety Report 10136941 (Version 1)
Quarter: 2014Q2

REPORT INFORMATION
  Report Type: Spontaneous
  Country: US (occurrence: None)
  Receive Date: 20140425
  Receipt Date: 20140425
  Transmission Date: 20141212
  Serious: Yes (Hospitalization)
  Sender: FDA-Public Use
  Company Number: UTC-047497

PATIENT
  Age: 64 Year
  Sex: Female
  Weight: 107.9 kg

DRUGS (1)
  1. REMODULIN (2.5 MILLIGRAM/MILLILITERS, INJECTION FOR INFUSION) (TREPROSTINIL SODIUM) [Suspect]
     Indication: PORTAL HYPERTENSION
     Dosage: 0.005 UG/KG, 1 IN 1 MIN
     Route: 058
     Dates: start: 20140224

REACTIONS (3)
  - Encephalopathy [None]
  - Infusion site erythema [None]
  - Infusion site inflammation [None]
